FAERS Safety Report 6391991-0 (Version None)
Quarter: 2009Q4

REPORT INFORMATION
  Report Type: 
  Country: None (occurrence: None)
  Receive Date: 20091007
  Receipt Date: 20091002
  Transmission Date: 20100525
  Serious: Yes (Other)
  Sender: FDA-Public Use
  Company Number: B0596068A

PATIENT
  Age: 70 Year
  Sex: Female

DRUGS (2)
  1. ARIXTRA [Suspect]
     Indication: THROMBOSIS PROPHYLAXIS
     Dosage: 1.5MG PER DAY
     Route: 058
     Dates: start: 20090801, end: 20090901
  2. LOXONIN [Suspect]
     Indication: ANALGESIC THERAPY
     Route: 048

REACTIONS (1)
  - MELAENA [None]
